FAERS Safety Report 11870906 (Version 4)
Quarter: 2016Q2

REPORT INFORMATION
  Report Type: Spontaneous
  Country: US (occurrence: US)
  Receive Date: 20151228
  Receipt Date: 20160616
  Transmission Date: 20160815
  Serious: Yes (Life-Threatening, Hospitalization, Disabling, Other)
  Sender: FDA-Public Use
  Company Number: US-BAYER-2015-490275

PATIENT
  Age: 30 Year
  Sex: Female
  Weight: 56.69 kg

DRUGS (11)
  1. GENTAMICIN. [Concomitant]
     Active Substance: GENTAMICIN
  2. METRONIDAZOLE. [Concomitant]
     Active Substance: METRONIDAZOLE
  3. MIRENA [Suspect]
     Active Substance: LEVONORGESTREL
     Indication: CONTRACEPTION
     Dosage: 20 MCG/24HR, CONT
     Route: 015
     Dates: start: 20080808, end: 20121220
  4. DEPO-PROVERA [Concomitant]
     Active Substance: MEDROXYPROGESTERONE ACETATE
  5. VICODIN [Concomitant]
     Active Substance: ACETAMINOPHEN\HYDROCODONE BITARTRATE
  6. YASMIN [Concomitant]
     Active Substance: DROSPIRENONE\ETHINYL ESTRADIOL
  7. AMPICILLIN [Concomitant]
     Active Substance: AMPICILLIN
  8. NUVARING [Concomitant]
     Active Substance: ETHINYL ESTRADIOL\ETONOGESTREL
  9. CITALOPRAM [Concomitant]
     Active Substance: CITALOPRAM HYDROBROMIDE
  10. ALPRAZOLAM. [Concomitant]
     Active Substance: ALPRAZOLAM
  11. SILICON DIOXIDE [Concomitant]
     Active Substance: SILICON DIOXIDE

REACTIONS (14)
  - Drug ineffective [None]
  - Scar [None]
  - Genital haemorrhage [None]
  - Abortion infected [None]
  - Abdominal pain lower [None]
  - Pelvic pain [None]
  - Uterine perforation [None]
  - Endometritis bacterial [None]
  - Thrombocytopenia [None]
  - Pelvic inflammatory disease [None]
  - Pregnancy with contraceptive device [None]
  - Neutropenia [None]
  - Haemorrhage in pregnancy [None]
  - Balance disorder [None]

NARRATIVE: CASE EVENT DATE: 200812
